FAERS Safety Report 7201436-6 (Version None)
Quarter: 2010Q4

REPORT INFORMATION
  Report Type: 
  Country: None (occurrence: None)
  Receive Date: 20101227
  Receipt Date: 20101227
  Transmission Date: 20110411
  Serious: Yes (Other)
  Sender: FDA-Public Use
  Company Number: None

PATIENT
  Sex: Female
  Weight: 68.0396 kg

DRUGS (2)
  1. LEVAQUIN [Suspect]
     Indication: COUGH
     Dosage: ONE TABLET DAILY FOR 7 DAYS
     Dates: start: 20101210, end: 20101217
  2. LEVAQUIN [Suspect]
     Indication: PULMONARY CONGESTION
     Dosage: ONE TABLET DAILY FOR 7 DAYS
     Dates: start: 20101210, end: 20101217

REACTIONS (4)
  - ARTHRALGIA [None]
  - HALLUCINATION [None]
  - PAIN IN EXTREMITY [None]
  - TREMOR [None]
